FAERS Safety Report 21314204 (Version 1)
Quarter: 2022Q3

REPORT INFORMATION
  Report Type: Spontaneous
  Country: US (occurrence: None)
  Receive Date: 20220909
  Receipt Date: 20220909
  Transmission Date: 20221027
  Serious: Yes (Other)
  Sender: FDA-Public Use
  Company Number: US-ARIS GLOBAL-202109-1644

PATIENT
  Sex: Male

DRUGS (10)
  1. OXERVATE [Suspect]
     Active Substance: CENEGERMIN-BKBJ
     Indication: Neurotrophic keratopathy
     Route: 047
     Dates: start: 20190220, end: 20190425
  2. OXERVATE [Suspect]
     Active Substance: CENEGERMIN-BKBJ
     Route: 047
     Dates: start: 20190508, end: 20190703
  3. OXERVATE [Suspect]
     Active Substance: CENEGERMIN-BKBJ
     Route: 047
     Dates: start: 20190917, end: 201911
  4. OXERVATE [Suspect]
     Active Substance: CENEGERMIN-BKBJ
     Route: 047
     Dates: start: 20200521, end: 202007
  5. OXERVATE [Suspect]
     Active Substance: CENEGERMIN-BKBJ
     Route: 047
     Dates: start: 20210907
  6. MELATONIN [Concomitant]
     Active Substance: MELATONIN
  7. GATIFLOXACIN [Concomitant]
     Active Substance: GATIFLOXACIN
  8. DUREZOL [Concomitant]
     Active Substance: DIFLUPREDNATE
  9. CLONAZEPAM [Concomitant]
     Active Substance: CLONAZEPAM
  10. ARTIFICIAL TEARS [Concomitant]
     Active Substance: GLYCERIN\HYPROMELLOSES\POLYETHYLENE GLYCOL 400
     Dosage: 0.1%-0.3%

REACTIONS (3)
  - Abnormal sensation in eye [Unknown]
  - Eye irritation [Unknown]
  - Photophobia [Unknown]
